FAERS Safety Report 9647600 (Version 2)
Quarter: 2013Q4

REPORT INFORMATION
  Report Type: Spontaneous
  Country: NL (occurrence: NL)
  Receive Date: 20131028
  Receipt Date: 20131028
  Transmission Date: 20140711
  Serious: Yes (Hospitalization)
  Sender: FDA-Public Use
  Company Number: NL-009507513-1302NLD003891

PATIENT
  Age: 56 Year
  Sex: Male

DRUGS (5)
  1. PEGINTRON [Suspect]
     Indication: HEPATITIS C
     Dosage: UNK, QW
     Route: 058
     Dates: start: 20130123, end: 20131022
  2. REBETOL [Suspect]
     Indication: HEPATITIS C
     Dosage: 600 MG, BID (3 CAPSULES TWICE A DAY)
     Route: 048
     Dates: start: 20130123, end: 20131022
  3. ACETAMINOPHEN [Concomitant]
     Dosage: UNK
  4. PANTOPRAZOLE [Concomitant]
     Dosage: 1 DF, QD
     Route: 048
  5. CITALOPRAM [Concomitant]
     Dosage: 20 MG, QD
     Route: 048

REACTIONS (6)
  - Disturbance in attention [Not Recovered/Not Resolved]
  - Insomnia [Not Recovered/Not Resolved]
  - Decreased appetite [Not Recovered/Not Resolved]
  - Diarrhoea [Not Recovered/Not Resolved]
  - Injection site erythema [Not Recovered/Not Resolved]
  - Nausea [Not Recovered/Not Resolved]
